FAERS Safety Report 13806061 (Version 1)
Quarter: 2017Q3

REPORT INFORMATION
  Report Type: Spontaneous
  Country: SE (occurrence: SE)
  Receive Date: 20170728
  Receipt Date: 20170728
  Transmission Date: 20171127
  Serious: Yes (Hospitalization)
  Sender: FDA-Public Use
  Company Number: SE-TEVA-789087ACC

PATIENT
  Age: 86 Year
  Sex: Female

DRUGS (8)
  1. DIMOR 2 MG FILMDRAGERAD TABLETT [Concomitant]
  2. MIRTAZAPINE. [Suspect]
     Active Substance: MIRTAZAPINE
  3. RISPERDAL [Suspect]
     Active Substance: RISPERIDONE
     Dosage: 1 1/2+2 DAGLIGEN?TABLETTEN VAR 0,5 MG
  4. LACTULOSE. [Concomitant]
     Active Substance: LACTULOSE
  5. OXASCAND [Suspect]
     Active Substance: OXAZEPAM
     Dates: end: 20170615
  6. INNOHEP 10 000 ANTI-XA IE/ML INJEKTIONSV?TSKA, L?SNING [Concomitant]
  7. LANZO 30 MG MUNS?NDERFALLANDE TABLETT [Concomitant]
  8. DASSELTA 5 MG FILMDRAGERAD TABLETT [Concomitant]

REACTIONS (1)
  - Depressed level of consciousness [Recovered/Resolved]

NARRATIVE: CASE EVENT DATE: 20170614
